FAERS Safety Report 18533364 (Version 1)
Quarter: 2020Q4

REPORT INFORMATION
  Report Type: Spontaneous
  Country: FR (occurrence: FR)
  Receive Date: 20201123
  Receipt Date: 20201123
  Transmission Date: 20210114
  Serious: Yes (Death)
  Sender: FDA-Public Use
  Company Number: FR-TEVA-2020-FR-1850540

PATIENT
  Age: 59 Year
  Sex: Female

DRUGS (5)
  1. ZOPICLONE [Suspect]
     Active Substance: ZOPICLONE
     Route: 065
  2. GABAPENTINE [Suspect]
     Active Substance: GABAPENTIN
     Route: 065
  3. CODEINE [Suspect]
     Active Substance: CODEINE
     Route: 065
  4. HYDROXYZINE (CHLORHYDRATE D^) [Suspect]
     Active Substance: HYDROXYZINE HYDROCHLORIDE
     Route: 065
  5. PHOLCODINE [Suspect]
     Active Substance: PHOLCODINE
     Route: 065

REACTIONS (1)
  - Death [Fatal]
